FAERS Safety Report 8212068-5 (Version None)
Quarter: 2012Q1

REPORT INFORMATION
  Report Type: 
  Country: None (occurrence: None)
  Receive Date: 20120315
  Receipt Date: 20120308
  Transmission Date: 20120608
  Serious: Yes (Other)
  Sender: FDA-Public Use
  Company Number: PHFR2011GB04058

PATIENT
  Sex: Female

DRUGS (8)
  1. SIMVASTATIN [Concomitant]
     Dosage: 40 MG, DAILY
     Route: 048
     Dates: start: 20110427
  2. CLOZARIL [Suspect]
     Route: 048
  3. DEPAKOTE [Concomitant]
     Dosage: 250 MG, DAILY
     Route: 048
     Dates: start: 20110526, end: 20110706
  4. DIAZEPAM [Concomitant]
     Dosage: 10 MG, DAILY
     Route: 048
     Dates: start: 20110427, end: 20110627
  5. NORETHINDRONE [Concomitant]
     Dosage: 15 MG, DAILY
     Route: 048
     Dates: start: 20110427
  6. LACTULOSE [Concomitant]
     Dosage: 40 MG, DAILY
     Route: 048
     Dates: start: 20110427
  7. CLOZARIL [Suspect]
     Indication: SCHIZOPHRENIA
     Dosage: 125 MG, DAILY
     Route: 048
     Dates: start: 20110624, end: 20110703
  8. FLUOXETINE [Concomitant]
     Dosage: 20 MG, DAILY
     Route: 048
     Dates: start: 20110427

REACTIONS (10)
  - PRURITUS [None]
  - SKIN HAEMORRHAGE [None]
  - OXYGEN SATURATION DECREASED [None]
  - AGNOSIA [None]
  - PYREXIA [None]
  - TACHYCARDIA [None]
  - CONFUSIONAL STATE [None]
  - HYPERTENSION [None]
  - HEART RATE INCREASED [None]
  - DISORIENTATION [None]
